FAERS Safety Report 25192014 (Version 1)
Quarter: 2025Q2

REPORT INFORMATION
  Report Type: Spontaneous
  Country: IT (occurrence: IT)
  Receive Date: 20250414
  Receipt Date: 20250414
  Transmission Date: 20250716
  Serious: Yes (Death, Other)
  Sender: AMGEN
  Company Number: IT-AMGEN-ITASP2025070728

PATIENT

DRUGS (1)
  1. ETANERCEPT [Suspect]
     Active Substance: ETANERCEPT
     Indication: Product used for unknown indication
     Route: 065

REACTIONS (15)
  - Death [Fatal]
  - Cardiovascular disorder [Fatal]
  - Neoplasm malignant [Fatal]
  - End stage renal disease [Unknown]
  - Procedural complication [Unknown]
  - Macroangiopathy [Unknown]
  - Chronic kidney disease [Unknown]
  - Portal vein thrombosis [Unknown]
  - Transplant failure [Unknown]
  - Haemorrhage [Unknown]
  - Infection [Unknown]
  - Bradycardia [Unknown]
  - Flank pain [Unknown]
  - Graft loss [Unknown]
  - Glomerular filtration rate decreased [Unknown]
